FAERS Safety Report 19197250 (Version 1)
Quarter: 2021Q2

REPORT INFORMATION
  Report Type: Spontaneous
  Country: CA (occurrence: CA)
  Receive Date: 20210429
  Receipt Date: 20210429
  Transmission Date: 20210717
  Serious: Yes (Hospitalization, Other)
  Sender: FDA-Public Use
  Company Number: CA-TEVA-2021-CA-1904085

PATIENT
  Sex: Female

DRUGS (1)
  1. PREDNISONE. [Suspect]
     Active Substance: PREDNISONE
     Indication: COLITIS ULCERATIVE
     Route: 065

REACTIONS (5)
  - Inflammatory bowel disease [Unknown]
  - Steroid dependence [Unknown]
  - Therapy non-responder [Unknown]
  - Colitis ulcerative [Unknown]
  - Drug ineffective [Unknown]
